FAERS Safety Report 12675030 (Version 1)
Quarter: 2016Q3

REPORT INFORMATION
  Report Type: Other
  Country: None (occurrence: US)
  Receive Date: 20160822
  Receipt Date: 20160822
  Transmission Date: 20161109
  Serious: Yes (Other)
  Sender: FDA-Public Use
  Company Number: US-GUTHY-RENKER LLC-1056630

PATIENT
  Age: 42 Year
  Sex: Female

DRUGS (2)
  1. MEANINGFUL BEAUTY CINDY CRAWFORD ANTIOXIDANT SPF 20 UVA/UVB [Suspect]
     Active Substance: AVOBENZONE\OCTINOXATE\OCTISALATE\OXYBENZONE
     Indication: PROPHYLAXIS AGAINST SOLAR RADIATION
     Route: 061
     Dates: start: 20160703, end: 20160704
  2. DANDELION ROOT, FISH OIL, ALOE [Concomitant]

REACTIONS (10)
  - Nausea [None]
  - Skin exfoliation [None]
  - Rash [Recovering/Resolving]
  - Pruritus [None]
  - Dry skin [None]
  - Muscle tightness [None]
  - Headache [None]
  - Skin haemorrhage [None]
  - Burning sensation [None]
  - Feeling hot [None]

NARRATIVE: CASE EVENT DATE: 20160704
